FAERS Safety Report 17893733 (Version 2)
Quarter: 2020Q2

REPORT INFORMATION
  Report Type: Report from Study
  Country: PL (occurrence: PL)
  Receive Date: 20200615
  Receipt Date: 20200615
  Transmission Date: 20200714
  Serious: Yes (Hospitalization)
  Sender: FDA-Public Use
  Company Number: PL-ROCHE-2615312

PATIENT
  Age: 69 Year
  Sex: Male
  Weight: 66 kg

DRUGS (13)
  1. TELMISARTANUM [Concomitant]
     Indication: CHRONIC OBSTRUCTIVE PULMONARY DISEASE
     Route: 065
     Dates: start: 20190521
  2. INFEX [CEFPODOXIME PROXETIL] [Concomitant]
     Indication: SINUSITIS
     Route: 065
     Dates: start: 20190226
  3. BUDESONIDE. [Concomitant]
     Active Substance: BUDESONIDE
     Indication: CHRONIC OBSTRUCTIVE PULMONARY DISEASE
     Route: 065
     Dates: start: 20190521
  4. MEGALIA [Concomitant]
     Active Substance: MEGESTROL ACETATE
     Indication: APPETITE DISORDER
     Route: 065
     Dates: start: 20200219
  5. BLINDED ATEZOLIZUMAB [Suspect]
     Active Substance: ATEZOLIZUMAB
     Indication: NON-SMALL CELL LUNG CANCER
     Route: 042
     Dates: start: 20190124
  6. NAB-PACLITAXEL [Suspect]
     Active Substance: PACLITAXEL
     Indication: NON-SMALL CELL LUNG CANCER
     Route: 042
     Dates: start: 20190124
  7. SINUMEDIN [Concomitant]
     Indication: RHINITIS
     Route: 065
     Dates: start: 20200513
  8. CARBOPLATIN. [Suspect]
     Active Substance: CARBOPLATIN
     Indication: NON-SMALL CELL LUNG CANCER
     Dosage: AUC OF 6 MG/ML/MIN
     Route: 042
     Dates: start: 20190124
  9. ATEZOLIZUMAB. [Suspect]
     Active Substance: ATEZOLIZUMAB
     Indication: NON-SMALL CELL LUNG CANCER
     Dosage: ON 13/MAY/2020, SHE RECEIVED MOST RECENT DOSE OF ATEZOLIZUMAB 1200 MG PRIOR TO ADVERSE EVENT.
     Route: 042
     Dates: start: 20190801
  10. GLYCOPYRRONIUM;INDACATEROL [Concomitant]
     Indication: CHRONIC OBSTRUCTIVE PULMONARY DISEASE
     Route: 065
     Dates: start: 20190521
  11. TAMSULOSINI HYDROCHLORIDUM [Concomitant]
     Indication: BENIGN PROSTATIC HYPERPLASIA
     Route: 048
  12. FORMOTEROL [Concomitant]
     Active Substance: FORMOTEROL
     Indication: CHRONIC OBSTRUCTIVE PULMONARY DISEASE
  13. FENOTEROL [Concomitant]
     Active Substance: FENOTEROL
     Indication: CHRONIC OBSTRUCTIVE PULMONARY DISEASE

REACTIONS (1)
  - Pulmonary tuberculosis [Not Recovered/Not Resolved]

NARRATIVE: CASE EVENT DATE: 20200601
